FAERS Safety Report 7771963-1 (Version None)
Quarter: 2011Q3

REPORT INFORMATION
  Report Type: 
  Country: None (occurrence: None)
  Receive Date: 20110922
  Receipt Date: 20110203
  Transmission Date: 20111222
  Serious: No
  Sender: FDA-Public Use
  Company Number: US-ASTRAZENECA-2011SE06351

PATIENT
  Sex: Female

DRUGS (5)
  1. SEROQUEL [Suspect]
     Route: 048
     Dates: start: 20090501
  2. ZYPREXA [Concomitant]
     Dates: start: 20090501
  3. PERCOLIN [Concomitant]
     Dates: start: 20090501
  4. XANAX [Concomitant]
     Dosage: 1 TSD
     Dates: start: 20090501
  5. TRILEPTAL [Concomitant]
     Dosage: 500 TO 1000 MG
     Dates: start: 20090501

REACTIONS (3)
  - MENOPAUSE [None]
  - DIABETES MELLITUS INADEQUATE CONTROL [None]
  - WEIGHT INCREASED [None]
